FAERS Safety Report 19736072 (Version 3)
Quarter: 2021Q3

REPORT INFORMATION
  Report Type: Report from Study
  Country: EG (occurrence: EG)
  Receive Date: 20210823
  Receipt Date: 20210831
  Transmission Date: 20211014
  Serious: Yes (Other)
  Sender: FDA-Public Use
  Company Number: NVSC2021EG177077

PATIENT
  Age: 44 Year
  Sex: Female

DRUGS (5)
  1. GAPTIN [Concomitant]
     Indication: PRODUCT USED FOR UNKNOWN INDICATION
     Dosage: UNK, Q12H
     Route: 065
  2. URSOFALK [Concomitant]
     Active Substance: URSODIOL
     Indication: PRODUCT USED FOR UNKNOWN INDICATION
     Dosage: UNK, Q12H
     Route: 065
  3. URSOFALK [Concomitant]
     Active Substance: URSODIOL
     Dosage: UNK
     Route: 065
  4. ZINC. [Concomitant]
     Active Substance: ZINC
     Indication: PRODUCT USED FOR UNKNOWN INDICATION
     Dosage: 1 DF, QD
     Route: 065
  5. GILENYA [Suspect]
     Active Substance: FINGOLIMOD HYDROCHLORIDE
     Indication: MULTIPLE SCLEROSIS
     Dosage: 0.5 MG, QD
     Route: 048
     Dates: start: 202007, end: 20210724

REACTIONS (9)
  - Skin burning sensation [Not Recovered/Not Resolved]
  - Blister [Not Recovered/Not Resolved]
  - Rash [Recovering/Resolving]
  - Haemoglobin increased [Unknown]
  - Full blood count abnormal [Unknown]
  - Herpes zoster [Recovering/Resolving]
  - Hepatic enzyme increased [Not Recovered/Not Resolved]
  - Breast swelling [Recovering/Resolving]
  - Macular fibrosis [Unknown]

NARRATIVE: CASE EVENT DATE: 20210324
